FAERS Safety Report 8946951 (Version 1)
Quarter: 2012Q4

REPORT INFORMATION
  Report Type: 
  Country: US (occurrence: US)
  Receive Date: 20121205
  Receipt Date: 20121205
  Transmission Date: 20130627
  Serious: No
  Sender: FDA-Public Use
  Company Number: US-BAYER-2012-120672

PATIENT
  Age: 44 Year

DRUGS (1)
  1. GADAVIST [Suspect]
     Dosage: 5.5 ml, UNK

REACTIONS (1)
  - Urticaria [Recovered/Resolved]
